FAERS Safety Report 13277278 (Version 1)
Quarter: 2017Q1

REPORT INFORMATION
  Report Type: Spontaneous
  Country: DE (occurrence: DE)
  Receive Date: 20170228
  Receipt Date: 20170228
  Transmission Date: 20170428
  Serious: Yes (Hospitalization)
  Sender: FDA-Public Use
  Company Number: DE-JNJFOC-20170222316

PATIENT
  Age: 54 Year
  Sex: Female

DRUGS (11)
  1. MELPERON [Suspect]
     Active Substance: MELPERONE
     Indication: PRODUCT USED FOR UNKNOWN INDICATION
     Route: 065
     Dates: start: 20100223, end: 20100308
  2. PANTOPRAZOLE SODIUM. [Concomitant]
     Active Substance: PANTOPRAZOLE SODIUM
     Route: 065
     Dates: start: 20100308
  3. CEFTRIAXONE. [Concomitant]
     Active Substance: CEFTRIAXONE
     Route: 065
     Dates: start: 20100205, end: 20100218
  4. PREDNISOLONE. [Concomitant]
     Active Substance: PREDNISOLONE
     Route: 065
  5. HALDOL [Suspect]
     Active Substance: HALOPERIDOL
     Indication: PRODUCT USED FOR UNKNOWN INDICATION
     Dosage: 4MG UP TO 10MG
     Route: 065
     Dates: start: 20100218, end: 20100308
  6. CLOMETHIAZOLE EDISILATE [Concomitant]
     Active Substance: CLOMETHIAZOLE EDISYLATE
     Route: 065
     Dates: start: 20100222, end: 20100308
  7. THIOCTIC ACID [Concomitant]
     Active Substance: THIOCTIC ACID
     Route: 065
     Dates: start: 20100302, end: 20100308
  8. FOLSAN [Concomitant]
     Active Substance: FOLIC ACID
     Route: 065
     Dates: start: 20100211, end: 20100316
  9. CLEXANE [Concomitant]
     Active Substance: ENOXAPARIN SODIUM
     Route: 065
  10. BISOHEXAL [Concomitant]
     Active Substance: BISOPROLOL FUMARATE
     Route: 065
     Dates: start: 20100308
  11. VITAMINE B1 [Concomitant]
     Route: 065

REACTIONS (3)
  - Jaundice [Recovered/Resolved]
  - Blood bilirubin increased [Recovered/Resolved]
  - Hepatic enzyme increased [Recovering/Resolving]

NARRATIVE: CASE EVENT DATE: 20100308
